FAERS Safety Report 23768076 (Version 1)
Quarter: 2024Q2

REPORT INFORMATION
  Report Type: Spontaneous
  Country: US (occurrence: US)
  Receive Date: 20240422
  Receipt Date: 20240422
  Transmission Date: 20240715
  Serious: No
  Sender: FDA-Public Use
  Company Number: US-JNJFOC-20240440641

PATIENT
  Age: 47 Year
  Sex: Male
  Weight: 90.8 kg

DRUGS (2)
  1. SPRAVATO [Suspect]
     Active Substance: ESKETAMINE
     Indication: Depression
  2. ATIVAN [Concomitant]
     Active Substance: LORAZEPAM

REACTIONS (1)
  - Therapeutic response unexpected [Unknown]
